FAERS Safety Report 12918695 (Version 1)
Quarter: 2016Q4

REPORT INFORMATION
  Report Type: Spontaneous
  Country: US (occurrence: US)
  Receive Date: 20161107
  Receipt Date: 20161107
  Transmission Date: 20170207
  Serious: No
  Sender: FDA-Public Use
  Company Number: US-ELI_LILLY_AND_COMPANY-US201610008377

PATIENT
  Age: 73 Year
  Sex: Male

DRUGS (13)
  1. ADCIRCA [Suspect]
     Active Substance: TADALAFIL
     Dosage: UNK, UNKNOWN
     Route: 065
     Dates: start: 20161005
  2. LEVAQUIN [Concomitant]
     Active Substance: LEVOFLOXACIN
     Indication: PNEUMONIA
  3. ADVAIR HFA [Concomitant]
     Active Substance: FLUTICASONE PROPIONATE\SALMETEROL XINAFOATE
  4. POTASSIUM CHLORIDE. [Concomitant]
     Active Substance: POTASSIUM CHLORIDE
  5. MULTI-VITAMINS VITAFIT [Concomitant]
     Active Substance: VITAMINS
  6. PROAIR HFA [Concomitant]
     Active Substance: ALBUTEROL SULFATE
  7. PREDNISONE. [Concomitant]
     Active Substance: PREDNISONE
  8. ASPIRIN                            /00002701/ [Concomitant]
     Active Substance: ASPIRIN
  9. SPIRIVA [Concomitant]
     Active Substance: TIOTROPIUM BROMIDE MONOHYDRATE
  10. PROMETHAZINE HYDROCHLORIDE. [Concomitant]
     Active Substance: PROMETHAZINE HYDROCHLORIDE
  11. AZITHROMYCIN ANHYDROUS. [Concomitant]
     Active Substance: AZITHROMYCIN ANHYDROUS
  12. POTASSIUM [Concomitant]
     Active Substance: POTASSIUM
  13. LETAIRIS [Suspect]
     Active Substance: AMBRISENTAN
     Indication: PULMONARY ARTERIAL HYPERTENSION
     Dosage: 20 MG, UNKNOWN
     Route: 065
     Dates: start: 20161005

REACTIONS (1)
  - Feeling abnormal [Not Recovered/Not Resolved]

NARRATIVE: CASE EVENT DATE: 20161005
